FAERS Safety Report 8802834 (Version 7)
Quarter: 2014Q1

REPORT INFORMATION
  Report Type: Spontaneous
  Country: US (occurrence: US)
  Receive Date: 20120921
  Receipt Date: 20140123
  Transmission Date: 20141002
  Serious: Yes (Hospitalization, Other)
  Sender: FDA-Public Use
  Company Number: US-009507513-1209USA004333

PATIENT
  Sex: Female
  Weight: 50.79 kg

DRUGS (6)
  1. FOSAMAX [Suspect]
     Indication: OSTEOPENIA
     Dosage: 10 MG, QD
     Route: 048
     Dates: start: 19990914, end: 200209
  2. FOSAMAX [Suspect]
     Dosage: 70 MG, UNK
     Route: 048
     Dates: start: 200210
  3. ACTONEL [Suspect]
     Indication: OSTEOPENIA
     Dosage: 70 MG, UNK
     Route: 048
     Dates: start: 200412, end: 20110202
  4. ACTONEL [Suspect]
     Indication: OSTEOPOROSIS
  5. BONIVA [Suspect]
     Indication: OSTEOPENIA
     Dosage: 150 MG, UNK
     Route: 048
     Dates: start: 201109, end: 20120202
  6. CALCIUM CARBONATE (+) CHOLECALCIFEROL [Concomitant]
     Indication: OSTEOPOROSIS

REACTIONS (42)
  - Femur fracture [Unknown]
  - Intramedullary rod insertion [Unknown]
  - Intraductal papilloma of breast [Unknown]
  - Open reduction of fracture [Unknown]
  - Femur fracture [Unknown]
  - Biopsy [Unknown]
  - Intraductal papilloma of breast [Unknown]
  - Femur fracture [Unknown]
  - Low turnover osteopathy [Unknown]
  - Adverse event [Unknown]
  - Hypertension [Unknown]
  - Hypercholesterolaemia [Unknown]
  - Anxiety [Unknown]
  - Injury [Unknown]
  - Rib fracture [Unknown]
  - Diabetes mellitus [Unknown]
  - Breast lump removal [Unknown]
  - Breast lump removal [Unknown]
  - Muscular weakness [Unknown]
  - Chest X-ray abnormal [Unknown]
  - Hypotension [Unknown]
  - Hepatic steatosis [Unknown]
  - Hyperplastic cholecystopathy [Unknown]
  - Groin pain [Unknown]
  - Cataract [Unknown]
  - Osteoarthritis [Unknown]
  - Infection [Unknown]
  - Impaired healing [Unknown]
  - Joint dislocation [Unknown]
  - Depression [Unknown]
  - Sleep disorder [Unknown]
  - Fatigue [Unknown]
  - Spinal osteoarthritis [Unknown]
  - Asthenia [Unknown]
  - Pyrexia [Unknown]
  - Aortic calcification [Unknown]
  - Vascular calcification [Unknown]
  - Post procedural haemorrhage [Unknown]
  - Urinary tract infection [Unknown]
  - Muscle strain [Unknown]
  - Rotator cuff syndrome [Unknown]
  - Arthralgia [Unknown]
